FAERS Safety Report 8619376-4 (Version None)
Quarter: 2012Q3

REPORT INFORMATION
  Report Type: 
  Country: None (occurrence: None)
  Receive Date: 20120824
  Receipt Date: 20120816
  Transmission Date: 20120928
  Serious: Yes (Other)
  Sender: FDA-Public Use
  Company Number: US-US-EMD SERONO, INC.-7155468

PATIENT
  Sex: Female

DRUGS (3)
  1. REBIF [Suspect]
     Indication: PRODUCT USED FOR UNKNOWN INDICATION
     Route: 058
     Dates: start: 20110315
  2. ALEVE [Concomitant]
     Indication: PREMEDICATION
  3. PHENERGAN HCL [Concomitant]
     Indication: PREMEDICATION

REACTIONS (5)
  - BASAL CELL CARCINOMA [None]
  - CATARACT [None]
  - INJECTION SITE RASH [None]
  - EYE INFECTION STAPHYLOCOCCAL [None]
  - INJECTION SITE ERYTHEMA [None]
